FAERS Safety Report 14137855 (Version 2)
Quarter: 2017Q4

REPORT INFORMATION
  Report Type: Spontaneous
  Country: JP (occurrence: JP)
  Receive Date: 20171027
  Receipt Date: 20171115
  Transmission Date: 20180321
  Serious: Yes (Death, Hospitalization, Other)
  Sender: FDA-Public Use
  Company Number: JP-ASTRAZENECA-2017SF07877

PATIENT
  Age: 31308 Day
  Sex: Female
  Weight: 30 kg

DRUGS (4)
  1. IRESSA [Suspect]
     Active Substance: GEFITINIB
     Indication: NON-SMALL CELL LUNG CANCER
     Route: 048
     Dates: start: 20140918, end: 20170712
  2. TAGRISSO [Suspect]
     Active Substance: OSIMERTINIB
     Indication: NON-SMALL CELL LUNG CANCER
     Route: 048
     Dates: start: 20170808, end: 20170823
  3. MINOMYCIN [Concomitant]
     Active Substance: MINOCYCLINE HYDROCHLORIDE
     Indication: URINARY TRACT INFECTION
     Route: 048
     Dates: start: 20170822, end: 20170823
  4. THYRADIN S [Concomitant]
     Active Substance: LEVOTHYROXINE SODIUM
     Indication: HYPOTHYROIDISM
     Route: 048
     Dates: start: 20161111, end: 20170824

REACTIONS (6)
  - Duodenal stenosis [Recovering/Resolving]
  - Malignant neoplasm progression [Unknown]
  - Pancreatitis acute [Fatal]
  - Ureteric stenosis [Recovering/Resolving]
  - Diarrhoea [Recovering/Resolving]
  - Metastases to retroperitoneum [Unknown]

NARRATIVE: CASE EVENT DATE: 20170627
